FAERS Safety Report 6167650-6 (Version None)
Quarter: 2009Q2

REPORT INFORMATION
  Report Type: 
  Country: None (occurrence: None)
  Receive Date: 20090424
  Receipt Date: 20090416
  Transmission Date: 20091009
  Serious: Yes (Other)
  Sender: FDA-Public Use
  Company Number: PHEH2007US00579

PATIENT
  Sex: Male

DRUGS (8)
  1. TEGRETOL [Suspect]
     Dosage: 200, 400, 800 MG DAILY AND TWICE DAILY
     Dates: start: 19970425, end: 20040324
  2. TEGRETOL [Suspect]
     Indication: SLEEP DISORDER
     Dosage: 200, 400, 800 MG DAILY AND TWICE DAILY
     Route: 048
     Dates: start: 19970425, end: 20040324
  3. TEGRETOL [Suspect]
     Indication: AFFECTIVE DISORDER
  4. TEGRETOL [Suspect]
     Indication: DEPRESSION
  5. TEGRETOL [Suspect]
     Indication: POST-TRAUMATIC STRESS DISORDER
  6. CARBAMAZEPINE [Suspect]
     Indication: SLEEP DISORDER
     Dosage: 200, 400, 800 MG
     Dates: start: 19970425, end: 20040324
  7. CARBAMAZEPINE [Suspect]
     Indication: AFFECTIVE DISORDER
  8. CARBAMAZEPINE [Suspect]
     Indication: DEPRESSION

REACTIONS (20)
  - ANOREXIA [None]
  - ANXIETY [None]
  - COLONOSCOPY [None]
  - CONSTIPATION [None]
  - DEPRESSED MOOD [None]
  - EMOTIONAL DISTRESS [None]
  - FACIAL PALSY [None]
  - GASTROINTESTINAL MOTILITY DISORDER [None]
  - GASTROINTESTINAL PAIN [None]
  - HAEMATOCHEZIA [None]
  - HYPOTHYROIDISM [None]
  - MIGRAINE [None]
  - MUSCLE TWITCHING [None]
  - NERVOUSNESS [None]
  - PAIN [None]
  - PROCTALGIA [None]
  - RECTAL HAEMORRHAGE [None]
  - TREMOR [None]
  - VOMITING [None]
  - WEIGHT DECREASED [None]
